FAERS Safety Report 15781210 (Version 4)
Quarter: 2019Q2

REPORT INFORMATION
  Report Type: Spontaneous
  Country: US (occurrence: US)
  Receive Date: 20190102
  Receipt Date: 20190412
  Transmission Date: 20190711
  Serious: Yes (Other)
  Sender: FDA-Public Use
  Company Number: US-SA-2018SA397109

PATIENT
  Sex: Male

DRUGS (3)
  1. SARILUMAB [Suspect]
     Active Substance: SARILUMAB
     Indication: PRODUCT USED FOR UNKNOWN INDICATION
     Dosage: UNK
     Route: 065
  2. ALLEGRA ALLERGY [Suspect]
     Active Substance: FEXOFENADINE HYDROCHLORIDE
     Indication: PRURITUS
     Dosage: 180 MG, UNK
     Route: 065
  3. LEVONORGESTREL + ETINILESTRADIOL [Suspect]
     Active Substance: ETHINYL ESTRADIOL\LEVONORGESTREL
     Indication: PRODUCT USED FOR UNKNOWN INDICATION
     Dosage: UNK UNK, UNK
     Route: 065

REACTIONS (5)
  - Dry eye [Unknown]
  - Macular degeneration [Unknown]
  - Cough [Unknown]
  - Drug ineffective [Unknown]
  - Urticaria [Recovered/Resolved]
